FAERS Safety Report 23705533 (Version 3)
Quarter: 2024Q2

REPORT INFORMATION
  Report Type: Spontaneous
  Country: BG (occurrence: BG)
  Receive Date: 20240404
  Receipt Date: 20240409
  Transmission Date: 20240716
  Serious: Yes (Other)
  Sender: FDA-Public Use
  Company Number: BG-002147023-NVSC2024BG069470

PATIENT
  Age: 71 Year
  Sex: Male

DRUGS (11)
  1. VALSARTAN [Suspect]
     Active Substance: VALSARTAN
     Indication: Hypertension
     Dosage: 1 DOSAGE FORM, QD
     Route: 065
     Dates: start: 2015, end: 2018
  2. VALSARTAN [Suspect]
     Active Substance: VALSARTAN
     Dosage: 160 MG, QD, ONCE IN THE MORNING
     Route: 065
     Dates: start: 2015, end: 2018
  3. HYDROCHLOROTHIAZIDE\VALSARTAN [Suspect]
     Active Substance: HYDROCHLOROTHIAZIDE\VALSARTAN
     Indication: Hypertension
     Dosage: 1 DOSAGE FORM, QD (IN THE MORNING)
     Route: 065
     Dates: start: 2018, end: 202208
  4. HYDROCHLOROTHIAZIDE\VALSARTAN [Suspect]
     Active Substance: HYDROCHLOROTHIAZIDE\VALSARTAN
     Dosage: 160MG/12.5MG ONCE IN THE MORNING
     Route: 065
  5. AMLODIPINE MALEATE\OLMESARTAN MEDOXOMIL [Suspect]
     Active Substance: AMLODIPINE MALEATE\OLMESARTAN MEDOXOMIL
     Indication: Hypertension
     Dosage: 1 DOSAGE FORM, QD (ONCE IN THE EVENING)
     Route: 065
     Dates: start: 202207, end: 202302
  6. AMLODIPINE MALEATE\OLMESARTAN MEDOXOMIL [Suspect]
     Active Substance: AMLODIPINE MALEATE\OLMESARTAN MEDOXOMIL
     Dosage: 20MG/5MG  ONCE IN THE MORNING
     Route: 065
     Dates: start: 202202
  7. HYDROCHLOROTHIAZIDE\OLMESARTAN MEDOXOMIL [Suspect]
     Active Substance: HYDROCHLOROTHIAZIDE\OLMESARTAN MEDOXOMIL
     Indication: Hypertension
     Dosage: 20MG/12.5MG
     Route: 065
     Dates: start: 202207, end: 202302
  8. MOXONIDINE [Suspect]
     Active Substance: MOXONIDINE
     Indication: Hypertension
     Dosage: 1 DOSAGE FORM, PRN (IN THE EVENING)
     Route: 065
     Dates: start: 2015
  9. MOXONIDINE [Suspect]
     Active Substance: MOXONIDINE
     Dosage: 0.2 MG ONCE  IN THE EVENING
     Route: 065
     Dates: start: 2015
  10. AMIKACIN [Concomitant]
     Active Substance: AMIKACIN
     Indication: Antibiotic therapy
     Dosage: 500 MG
     Route: 030
  11. AMIKACIN [Concomitant]
     Active Substance: AMIKACIN
     Dosage: 1000 MG
     Route: 030
     Dates: start: 2023

REACTIONS (5)
  - Squamous cell carcinoma of skin [Unknown]
  - Basal cell carcinoma [Unknown]
  - Suspected product contamination [Unknown]
  - Skin papilloma [Unknown]
  - Neoplasm malignant [Unknown]
